FAERS Safety Report 4473038-6 (Version None)
Quarter: 2004Q4

REPORT INFORMATION
  Report Type: 
  Country: None (occurrence: None)
  Receive Date: 20041013
  Receipt Date: 20040812
  Transmission Date: 20050328
  Serious: Yes (Other)
  Sender: FDA-Public Use
  Company Number: US-GLAXOSMITHKLINE-A0521972A

PATIENT
  Age: 33 Year
  Sex: Female
  Weight: 52.7 kg

DRUGS (5)
  1. RELAFEN [Suspect]
     Indication: CARPAL TUNNEL SYNDROME
     Dosage: 1000MG PER DAY
     Route: 048
     Dates: start: 20020601
  2. WELLBUTRIN XL [Concomitant]
     Indication: DEPRESSION
  3. AMITRIPTYLINE HCL [Concomitant]
     Indication: MIGRAINE
  4. VERELAN [Concomitant]
     Indication: MIGRAINE
  5. CLONAZEPAM [Concomitant]
     Indication: DEPRESSION

REACTIONS (4)
  - NONSPECIFIC REACTION [None]
  - PORPHYRIA [None]
  - PSEUDOPORPHYRIA [None]
  - RASH [None]
